FAERS Safety Report 12642177 (Version 1)
Quarter: 2016Q3

REPORT INFORMATION
  Report Type: Report from Study
  Country: CN (occurrence: CN)
  Receive Date: 20160810
  Receipt Date: 20160810
  Transmission Date: 20161109
  Serious: Yes (Other)
  Sender: FDA-Public Use
  Company Number: CN-MYLANLABS-2016M1032820

PATIENT

DRUGS (2)
  1. TIMOLOL. [Suspect]
     Active Substance: TIMOLOL
     Indication: OFF LABEL USE
  2. TIMOLOL. [Suspect]
     Active Substance: TIMOLOL
     Indication: INFANTILE HAEMANGIOMA
     Dosage: A 5 ML VIAL CONTAINING 25MG OF TIMOLOL
     Route: 061

REACTIONS (2)
  - Tumour ulceration [Unknown]
  - Off label use [Unknown]
